FAERS Safety Report 8363322-8 (Version None)
Quarter: 2012Q2

REPORT INFORMATION
  Report Type: 
  Country: None (occurrence: None)
  Receive Date: 20120516
  Receipt Date: 20120507
  Transmission Date: 20120825
  Serious: Yes (Other)
  Sender: FDA-Public Use
  Company Number: CN-SANOFI-AVENTIS-2012SA031675

PATIENT
  Age: 52 Year
  Sex: Female
  Weight: 60 kg

DRUGS (3)
  1. LANTUS [Suspect]
     Indication: DIABETES MELLITUS
     Route: 058
     Dates: start: 20120320, end: 20120507
  2. INSULIN DETEMIR [Concomitant]
     Indication: DIABETES MELLITUS
     Route: 058
     Dates: start: 20120320
  3. SOLOSTAR [Suspect]
     Indication: DEVICE THERAPY
     Dates: start: 20120320

REACTIONS (4)
  - EYE PAIN [None]
  - EYE OEDEMA [None]
  - VISION BLURRED [None]
  - KERATITIS [None]
